FAERS Safety Report 9585715 (Version 1)
Quarter: 2013Q4

REPORT INFORMATION
  Report Type: Report from Study
  Country: DE (occurrence: DE)
  Receive Date: 20131003
  Receipt Date: 20131003
  Transmission Date: 20140711
  Serious: Yes (Hospitalization)
  Sender: FDA-Public Use
  Company Number: DE-009507513-1309DEU013317

PATIENT
  Age: 51 Year
  Sex: Female

DRUGS (1)
  1. BOCEPREVIR [Suspect]
     Indication: CHRONIC HEPATITIS C
     Route: 048

REACTIONS (1)
  - Non-Hodgkin^s lymphoma [Unknown]
